FAERS Safety Report 7054638-6 (Version None)
Quarter: 2010Q4

REPORT INFORMATION
  Report Type: 
  Country: None (occurrence: None)
  Receive Date: 20101015
  Receipt Date: 20101007
  Transmission Date: 20110411
  Serious: Yes (Hospitalization)
  Sender: FDA-Public Use
  Company Number: 2010US003986

PATIENT
  Age: 58 Year
  Sex: Male
  Weight: 84 kg

DRUGS (8)
  1. AMEVIVE [Suspect]
     Indication: PSORIASIS
     Dosage: 15 MG WEEKLY, INTRAMUSCULAR
     Route: 030
     Dates: start: 20040617
  2. CITALOPRAM (CITALOPRAM) TABLET [Concomitant]
  3. TRICOR (FENOFIBRATE) TABLET [Concomitant]
  4. DILAUDID [Concomitant]
  5. MORPHINE [Concomitant]
  6. BENICAR [Concomitant]
  7. PROTONIX [Concomitant]
  8. COLACE (DOCUSATE SODIUM) CAPSULE [Concomitant]

REACTIONS (2)
  - INCISIONAL HERNIA REPAIR [None]
  - PROCEDURAL PAIN [None]
